FAERS Safety Report 10716260 (Version 1)
Quarter: 2015Q1

REPORT INFORMATION
  Report Type: Spontaneous
  Country: US (occurrence: US)
  Receive Date: 20150116
  Receipt Date: 20150116
  Transmission Date: 20150721
  Serious: No
  Sender: FDA-Public Use
  Company Number: US-PFIZER INC-2015017431

PATIENT
  Sex: Female

DRUGS (1)
  1. PRISTIQ EXTENDED RELEASE [Suspect]
     Active Substance: DESVENLAFAXINE SUCCINATE
     Dosage: 500 MG, UNK
     Route: 048

REACTIONS (4)
  - Drug withdrawal syndrome [Unknown]
  - Diarrhoea [Unknown]
  - Dry mouth [Unknown]
  - Anxiety [Unknown]
